FAERS Safety Report 5907011-5 (Version None)
Quarter: 2008Q4

REPORT INFORMATION
  Report Type: 
  Country: None (occurrence: None)
  Receive Date: 20081003
  Receipt Date: 20080924
  Transmission Date: 20090506
  Serious: Yes (Other)
  Sender: FDA-Public Use
  Company Number: US-PURDUE-USA_2008_0034123

PATIENT
  Sex: Female
  Weight: 69 kg

DRUGS (5)
  1. OXYCONTIN [Suspect]
     Indication: PAIN
     Dosage: 20 MG, BID
     Route: 048
  2. INTERFERON [Concomitant]
     Indication: HEPATITIS C
     Dosage: 200 MG, 5X/WEEK
     Route: 048
     Dates: start: 20080501
  3. RIBAVIRIN [Concomitant]
     Indication: HEPATITIS C
     Dosage: 180 MG, WEEKLY
     Route: 048
     Dates: start: 20080501
  4. PAXIL [Concomitant]
     Indication: DEPRESSION
     Dosage: 12.5 MG, BID
     Route: 048
     Dates: start: 20080501
  5. ESTRADIOL TRANSDERMAL [Concomitant]
     Indication: POSTMENOPAUSE
     Dosage: UNK MG, UNK
     Route: 062

REACTIONS (10)
  - ANOREXIA [None]
  - FATIGUE [None]
  - HEART RATE DECREASED [None]
  - HYPOTENSION [None]
  - OROPHARYNGEAL PAIN [None]
  - POLLAKIURIA [None]
  - RASH MACULAR [None]
  - SKIN LESION [None]
  - VIRAL LOAD DECREASED [None]
  - WHITE BLOOD CELL COUNT DECREASED [None]
